FAERS Safety Report 5756715-6 (Version None)
Quarter: 2008Q2

REPORT INFORMATION
  Report Type: 
  Country: None (occurrence: None)
  Receive Date: 20080603
  Receipt Date: 20080523
  Transmission Date: 20081010
  Serious: Yes (Hospitalization)
  Sender: FDA-Public Use
  Company Number: FR-TEVA-172003ISR

PATIENT
  Sex: Female

DRUGS (3)
  1. METHOTREXATE [Suspect]
     Route: 042
     Dates: start: 20080210, end: 20080227
  2. DOXORUBICIN HYDROCHLORIDE [Concomitant]
  3. CISPLATIN [Concomitant]

REACTIONS (2)
  - AGRANULOCYTOSIS [None]
  - NEUTROPENIA [None]
